FAERS Safety Report 13399612 (Version 3)
Quarter: 2017Q2

REPORT INFORMATION
  Report Type: Spontaneous
  Country: US (occurrence: US)
  Receive Date: 20170404
  Receipt Date: 20170510
  Transmission Date: 20170830
  Serious: Yes (Death, Hospitalization)
  Sender: FDA-Public Use
  Company Number: US-ASTRAZENECA-2017SE33574

PATIENT
  Age: 922 Month
  Sex: Male
  Weight: 93.9 kg

DRUGS (3)
  1. CORTICOSTEROID NOS [Concomitant]
     Active Substance: CORTICOSTEROID NOS
  2. BEVESPI AEROSPHERE [Suspect]
     Active Substance: FORMOTEROL FUMARATE\GLYCOPYRROLATE
     Indication: CHRONIC OBSTRUCTIVE PULMONARY DISEASE
     Dosage: 9/4.8 MCG
     Route: 055
     Dates: start: 20170327
  3. SYMBICORT [Suspect]
     Active Substance: BUDESONIDE\FORMOTEROL FUMARATE DIHYDRATE
     Dosage: UNKNOWN UNKNOWN
     Route: 055
     Dates: end: 20170327

REACTIONS (6)
  - Pneumonia [Unknown]
  - Neck pain [Fatal]
  - Pain [Fatal]
  - Musculoskeletal pain [Fatal]
  - Dyspnoea [Unknown]
  - Ear pain [Fatal]

NARRATIVE: CASE EVENT DATE: 201703
